FAERS Safety Report 15560567 (Version 1)
Quarter: 2018Q4

REPORT INFORMATION
  Report Type: Spontaneous
  Country: ES (occurrence: ES)
  Receive Date: 20181029
  Receipt Date: 20181029
  Transmission Date: 20190205
  Serious: Yes (Other)
  Sender: FDA-Public Use
  Company Number: ES-PFIZER INC-2018434544

PATIENT
  Sex: Male

DRUGS (8)
  1. RANITIDINE. [Suspect]
     Active Substance: RANITIDINE
     Dosage: 150 MG, UNK
     Route: 064
  2. OXYGEN. [Suspect]
     Active Substance: OXYGEN
     Dosage: UNK
     Route: 064
  3. OXYTOCIN. [Suspect]
     Active Substance: OXYTOCIN
     Dosage: UNK
     Route: 064
  4. LEVOTHYROXINE. [Suspect]
     Active Substance: LEVOTHYROXINE
     Indication: HYPOTHYROIDISM
     Dosage: UNK
     Route: 064
  5. BEMIPARIN [Suspect]
     Active Substance: BEMIPARIN
     Dosage: 3500 U, DAILY (3500 U/DAY)
     Route: 064
  6. DINOPROSTONE. [Suspect]
     Active Substance: DINOPROSTONE
     Indication: DELIVERY
     Dosage: UNK
     Route: 064
  7. REMIFENTANIL [Suspect]
     Active Substance: REMIFENTANIL
     Indication: ANALGESIC THERAPY
     Dosage: UNK (0.01 UG/KG/MINUTE)
     Route: 064
  8. REMIFENTANIL [Suspect]
     Active Substance: REMIFENTANIL
     Dosage: UNK (MAXIMUM LIMIT SET AT 0.25 UG/KG/MINUTE)
     Route: 064

REACTIONS (3)
  - Underweight [Unknown]
  - Shoulder dystocia [Unknown]
  - Foetal exposure during pregnancy [Unknown]
